FAERS Safety Report 4788053-2 (Version None)
Quarter: 2005Q4

REPORT INFORMATION
  Report Type: 
  Country: None (occurrence: None)
  Receive Date: 20051004
  Receipt Date: 20051004
  Transmission Date: 20060501
  Serious: Yes (Hospitalization)
  Sender: FDA-Public Use
  Company Number: None

PATIENT
  Age: 85 Year
  Sex: Male
  Weight: 96.1626 kg

DRUGS (1)
  1. LISINOPRIL [Suspect]
     Indication: HYPERTENSION
     Dosage: 2.5MG   DAILY   PO
     Route: 048
     Dates: start: 20051001, end: 20051002

REACTIONS (3)
  - ANGIONEUROTIC OEDEMA [None]
  - LARYNGOTRACHEAL OEDEMA [None]
  - LOCALISED OEDEMA [None]
